FAERS Safety Report 4864858-4 (Version None)
Quarter: 2005Q4

REPORT INFORMATION
  Report Type: 
  Country: None (occurrence: None)
  Receive Date: 20051201
  Receipt Date: 20050720
  Transmission Date: 20060501
  Serious: No
  Sender: FDA-Public Use
  Company Number: 2005PV000483

PATIENT
  Age: 49 Year
  Sex: Female
  Weight: 65.7716 kg

DRUGS (4)
  1. BYETTA [Suspect]
     Indication: DIABETES MELLITUS
     Dosage: 5 MCG; BID; SC
     Route: 058
     Dates: start: 20050627
  2. YASMIN [Concomitant]
  3. AVANDIA [Concomitant]
  4. METFORMIN [Concomitant]

REACTIONS (2)
  - MENSTRUATION IRREGULAR [None]
  - NAUSEA [None]
